FAERS Safety Report 5825053-5 (Version None)
Quarter: 2008Q3

REPORT INFORMATION
  Report Type: 
  Country: None (occurrence: None)
  Receive Date: 20080729
  Receipt Date: 20080716
  Transmission Date: 20090109
  Serious: Yes (Hospitalization)
  Sender: FDA-Public Use
  Company Number: SG-BRISTOL-MYERS SQUIBB COMPANY-14265474

PATIENT
  Age: 67 Year
  Sex: Male
  Weight: 73 kg

DRUGS (10)
  1. APIXABAN [Suspect]
     Indication: THROMBOSIS PROPHYLAXIS
     Dosage: 1 DOSAGE FORM=2 TABS
     Route: 048
     Dates: start: 20080709, end: 20080716
  2. PLACEBO [Suspect]
     Indication: THROMBOSIS PROPHYLAXIS
     Dates: start: 20080701, end: 20080716
  3. ENOXAPARIN SODIUM [Suspect]
     Indication: THROMBOSIS PROPHYLAXIS
     Route: 058
     Dates: start: 20080707, end: 20080716
  4. ACETYLSALICYLIC ACID SRT [Concomitant]
     Indication: MYOCARDIAL ISCHAEMIA
     Route: 048
     Dates: start: 20040524, end: 20080701
  5. ATACAND HCT [Concomitant]
     Indication: HYPERTENSION
     Dosage: 1 DF= 0.5 TAB
     Route: 048
     Dates: start: 20040525
  6. ALFUZOSIN HCL [Concomitant]
     Indication: HYPERTENSION
     Route: 048
     Dates: start: 20040714
  7. SIMVASTATIN [Concomitant]
     Indication: HYPERCHOLESTEROLAEMIA
     Route: 048
     Dates: start: 20040611
  8. ISOSORBIDE DINITRATE [Concomitant]
     Indication: MYOCARDIAL ISCHAEMIA
     Route: 048
     Dates: start: 20040504
  9. ATENOLOL [Concomitant]
     Indication: HYPERTENSION
     Route: 048
     Dates: start: 19930101
  10. FAMOTIDINE [Concomitant]
     Indication: PROPHYLAXIS
     Route: 048
     Dates: start: 20000626

REACTIONS (3)
  - CHOLECYSTITIS ACUTE [None]
  - HEPATITIS [None]
  - PNEUMONIA [None]
